FAERS Safety Report 4580673-3 (Version None)
Quarter: 2005Q1

REPORT INFORMATION
  Report Type: 
  Country: None (occurrence: None)
  Receive Date: 20050214
  Receipt Date: 20040510
  Transmission Date: 20050727
  Serious: No
  Sender: FDA-Public Use
  Company Number: US-GLAXOSMITHKLINE-A0510218A

PATIENT
  Sex: Female

DRUGS (10)
  1. LAMICTAL [Suspect]
     Indication: BIPOLAR DISORDER
     Dosage: 50MG PER DAY
     Route: 048
  2. TOPAMAX [Concomitant]
  3. WELLBUTRIN SR [Concomitant]
  4. TRAZODONE [Concomitant]
  5. LEXAPRO [Concomitant]
  6. PROVIGIL [Concomitant]
  7. VICOPROFEN [Concomitant]
  8. FLEXERIL [Concomitant]
  9. CIPRO [Concomitant]
  10. FLAGYL [Concomitant]

REACTIONS (2)
  - ANAPHYLACTIC REACTION [None]
  - RASH [None]
